FAERS Safety Report 8895008 (Version 2)
Quarter: 2012Q4

REPORT INFORMATION
  Report Type: 
  Country: DE (occurrence: DE)
  Receive Date: 20121108
  Receipt Date: 20121127
  Transmission Date: 20130627
  Serious: Yes (Hospitalization)
  Sender: FDA-Public Use
  Company Number: PHHY2012DE102179

PATIENT
  Sex: Female

DRUGS (3)
  1. EXTAVIA [Suspect]
     Indication: MULTIPLE SCLEROSIS
     Dosage: 0.5 ml, QOD
     Route: 058
     Dates: start: 20121016
  2. EXTAVIA [Suspect]
     Dosage: 125 ug/ml, QOD
     Route: 058
     Dates: end: 20121022
  3. CORTISONE [Concomitant]

REACTIONS (1)
  - Arrhythmia [Not Recovered/Not Resolved]
